FAERS Safety Report 7049424-7 (Version None)
Quarter: 2010Q4

REPORT INFORMATION
  Report Type: 
  Country: None (occurrence: None)
  Receive Date: 20101018
  Receipt Date: 20101013
  Transmission Date: 20110411
  Serious: Yes (Other)
  Sender: FDA-Public Use
  Company Number: US-PFIZER INC-2010130339

PATIENT
  Sex: Female
  Weight: 65.306 kg

DRUGS (2)
  1. CHANTIX [Suspect]
     Indication: SMOKING CESSATION THERAPY
     Dosage: UNK
     Route: 048
     Dates: start: 20100621, end: 20100901
  2. LEVSIN [Concomitant]
     Indication: FLATULENCE
     Dosage: 0.125 MG, AS NEEDED
     Route: 048

REACTIONS (4)
  - ANXIETY [None]
  - FLATULENCE [None]
  - HYPERHIDROSIS [None]
  - PALPITATIONS [None]
